FAERS Safety Report 12169168 (Version 2)
Quarter: 2016Q1

REPORT INFORMATION
  Report Type: Report from Study
  Country: IT (occurrence: IT)
  Receive Date: 20160310
  Receipt Date: 20160311
  Transmission Date: 20160526
  Serious: Yes (Other)
  Sender: FDA-Public Use
  Company Number: IT-BAXTER-2016BAX010515

PATIENT
  Age: 10 Year

DRUGS (3)
  1. THIOTEPA. [Suspect]
     Active Substance: THIOTEPA
     Indication: BONE MARROW CONDITIONING REGIMEN
     Dosage: ON DAYS 1,2,3
     Route: 065
  2. ENDOXAN BAXTER [Suspect]
     Active Substance: CYCLOPHOSPHAMIDE
     Indication: BONE MARROW CONDITIONING REGIMEN
     Dosage: 4-5 DAYS
     Route: 065
  3. ETOPOSIDE. [Suspect]
     Active Substance: ETOPOSIDE
     Indication: BONE MARROW CONDITIONING REGIMEN
     Dosage: ON DAYS 1,2,3
     Route: 065

REACTIONS (3)
  - Hepatotoxicity [Unknown]
  - Hepatic neoplasm [Unknown]
  - Focal nodular hyperplasia [Unknown]
